FAERS Safety Report 15518630 (Version 4)
Quarter: 2018Q4

REPORT INFORMATION
  Report Type: Spontaneous
  Country: US (occurrence: US)
  Receive Date: 20181017
  Receipt Date: 20181107
  Transmission Date: 20190205
  Serious: No
  Sender: FDA-Public Use
  Company Number: US-TEVA-2018-US-963407

PATIENT
  Age: 62 Year
  Sex: Male

DRUGS (2)
  1. CLONAZEPAM ACTAVIS [Suspect]
     Active Substance: CLONAZEPAM
     Indication: PANIC ATTACK
  2. CLONAZEPAM ACTAVIS [Suspect]
     Active Substance: CLONAZEPAM
     Indication: ANXIETY
     Route: 065
     Dates: start: 2018

REACTIONS (11)
  - Poor quality sleep [Unknown]
  - Tension [Unknown]
  - Product substitution issue [Unknown]
  - Tinnitus [Unknown]
  - Withdrawal syndrome [Unknown]
  - Insomnia [Unknown]
  - Heart rate increased [Unknown]
  - Anxiety [Unknown]
  - Drug ineffective [Unknown]
  - Feeling abnormal [Unknown]
  - Dyspnoea [Unknown]

NARRATIVE: CASE EVENT DATE: 201809
